FAERS Safety Report 10176602 (Version 1)
Quarter: 2014Q2

REPORT INFORMATION
  Report Type: Spontaneous
  Country: CA (occurrence: None)
  Receive Date: 20140514
  Receipt Date: 20140514
  Transmission Date: 20141212
  Serious: Yes (Other)
  Sender: FDA-Public Use
  Company Number: CA-015654

PATIENT
  Age: 78 Year
  Sex: Male

DRUGS (8)
  1. FIRMAGON /01764801/ (FIRMAGON) 80 MG (NOT SPECIFIED) [Suspect]
     Indication: PROSTATE CANCER
     Dosage: (80 MG 1X/MONTH SUBCUTANEOUS)?
     Route: 058
     Dates: start: 20130207
  2. TYLENOL ARTHRITIS [Concomitant]
  3. PREDNISONE [Concomitant]
  4. RABEPRAZOLE [Concomitant]
  5. FRAGMIN [Concomitant]
  6. GABAPENTIN [Concomitant]
  7. MORPHINE [Concomitant]
  8. LAXATIVE [Concomitant]

REACTIONS (1)
  - Oesophageal carcinoma [None]
